FAERS Safety Report 17055398 (Version 1)
Quarter: 2019Q4

REPORT INFORMATION
  Report Type: Spontaneous
  Country: IE (occurrence: IE)
  Receive Date: 20191120
  Receipt Date: 20191120
  Transmission Date: 20200122
  Serious: Yes (Other)
  Sender: FDA-Public Use
  Company Number: IE-MYLANLABS-2019M1112115

PATIENT
  Sex: Female

DRUGS (1)
  1. EPIPEN [Suspect]
     Active Substance: EPINEPHRINE
     Indication: PRODUCT USED FOR UNKNOWN INDICATION
     Dosage: HANDLING AN EXPIRED UNIT OF EPIPEN WITH A VIEW TO FUTURE USE AS A TRAINING UNIT

REACTIONS (5)
  - Occupational exposure to product [Unknown]
  - Product label issue [Unknown]
  - Limb injury [Unknown]
  - Accidental exposure to product [Unknown]
  - Expired product administered [Unknown]
